FAERS Safety Report 4836160-8 (Version None)
Quarter: 2005Q4

REPORT INFORMATION
  Report Type: 
  Country: None (occurrence: None)
  Receive Date: 20051123
  Receipt Date: 20051116
  Transmission Date: 20060501
  Serious: Yes (Death)
  Sender: FDA-Public Use
  Company Number: US-JNJFOC-20051104464

PATIENT
  Age: 62 Year
  Sex: Male
  Weight: 56.7 kg

DRUGS (3)
  1. DURAGESIC-100 [Suspect]
     Dosage: TWO 50 UG/HR PATCHES IN 72 HOURS FOR TOTAL DOSE OF 100 UG/HR IN 72 HOURS
     Route: 062
  2. DURAGESIC-100 [Suspect]
     Indication: CANCER PAIN
     Dosage: TWO 75 UG/HR PATCHES IN 72 HOURS FOR TOTAL DOSE OF 150 UG/HR
     Route: 062
  3. LIQUID MORPHINE [Concomitant]
     Indication: PAIN

REACTIONS (1)
  - PANCREATIC CARCINOMA [None]
